FAERS Safety Report 7950334-9 (Version None)
Quarter: 2011Q4

REPORT INFORMATION
  Report Type: 
  Country: None (occurrence: None)
  Receive Date: 20111130
  Receipt Date: 20111121
  Transmission Date: 20120403
  Serious: Yes (Other)
  Sender: FDA-Public Use
  Company Number: CN-ASTRAZENECA-2011SE70545

PATIENT
  Sex: Female

DRUGS (2)
  1. PROPOFOL [Suspect]
     Indication: ANAESTHESIA
     Dosage: 2 MG/S
     Route: 042
  2. LIDOCAINE [Suspect]
     Indication: ANAESTHESIA
     Dosage: 10-15 ML

REACTIONS (7)
  - MENTAL DISORDER [None]
  - BLOOD PRESSURE DECREASED [None]
  - RESPIRATORY DEPRESSION [None]
  - VOMITING [None]
  - NAUSEA [None]
  - COLD SWEAT [None]
  - HEART RATE DECREASED [None]
